FAERS Safety Report 16051337 (Version 2)
Quarter: 2019Q2

REPORT INFORMATION
  Report Type: Spontaneous
  Country: US (occurrence: US)
  Receive Date: 20190308
  Receipt Date: 20190425
  Transmission Date: 20190711
  Serious: No
  Sender: FDA-Public Use
  Company Number: US-BAUSCH-BL-2019-006810

PATIENT
  Age: 69 Year
  Sex: Female

DRUGS (3)
  1. LOTEMAX [Suspect]
     Active Substance: LOTEPREDNOL ETABONATE
     Indication: EYE PAIN
     Dosage: ONE DROP IN EACH EYE; TAPER BY 1 DROP EVERY 2 WEEKS
     Route: 047
     Dates: start: 20190223, end: 20190228
  2. LOTEMAX [Suspect]
     Active Substance: LOTEPREDNOL ETABONATE
     Indication: SWELLING
  3. LOTEMAX [Suspect]
     Active Substance: LOTEPREDNOL ETABONATE
     Indication: PRODUCT USE IN UNAPPROVED INDICATION

REACTIONS (6)
  - Condition aggravated [Recovered/Resolved]
  - Eye pain [Recovered/Resolved]
  - Swelling [Recovered/Resolved]
  - Product use in unapproved indication [Unknown]
  - Dry eye [Recovered/Resolved]
  - Pain [Recovered/Resolved]

NARRATIVE: CASE EVENT DATE: 20190223
